FAERS Safety Report 11158138 (Version 4)
Quarter: 2015Q3

REPORT INFORMATION
  Report Type: Spontaneous
  Country: US (occurrence: US)
  Receive Date: 20150603
  Receipt Date: 20150731
  Transmission Date: 20151125
  Serious: Yes (Other)
  Sender: FDA-Public Use
  Company Number: US-BAYER-2015-291295

PATIENT
  Age: 22 Year
  Sex: Female
  Weight: 62.13 kg

DRUGS (1)
  1. MIRENA [Suspect]
     Active Substance: LEVONORGESTREL
     Indication: CONTRACEPTION
     Dosage: 20 MCG/24HR, CONT
     Route: 015
     Dates: start: 20140522, end: 20150416

REACTIONS (4)
  - Drug ineffective [None]
  - Abdominal pain lower [None]
  - Ectopic pregnancy with contraceptive device [None]
  - Chlamydial infection [None]

NARRATIVE: CASE EVENT DATE: 2015
